FAERS Safety Report 10741476 (Version 1)
Quarter: 2015Q1

REPORT INFORMATION
  Report Type: Spontaneous
  Country: US (occurrence: US)
  Receive Date: 20150127
  Receipt Date: 20150127
  Transmission Date: 20150721
  Serious: Yes (Other)
  Sender: FDA-Public Use
  Company Number: US-AUROBINDO-AUR-APU-2015-00458

PATIENT
  Age: 60 Year
  Sex: Female

DRUGS (1)
  1. SIMVASTATIN TABLETS USP 20 MG [Suspect]
     Active Substance: SIMVASTATIN
     Indication: BLOOD CHOLESTEROL INCREASED
     Dosage: 20 MG, AT BED TIME
     Route: 065
     Dates: start: 20150110, end: 20150115

REACTIONS (4)
  - Cough [Unknown]
  - Nasopharyngitis [Unknown]
  - Rash [Unknown]
  - Adverse reaction [Unknown]

NARRATIVE: CASE EVENT DATE: 20150110
